FAERS Safety Report 4707898-8 (Version None)
Quarter: 2005Q3

REPORT INFORMATION
  Report Type: 
  Country: None (occurrence: None)
  Receive Date: 20050707
  Receipt Date: 20041207
  Transmission Date: 20060218
  Serious: No
  Sender: FDA-Public Use
  Company Number: US-BRISTOL-MYERS SQUIBB COMPANY-12788477

PATIENT
  Age: 65 Year
  Sex: Male
  Weight: 98 kg

DRUGS (14)
  1. SINEMET CR [Suspect]
     Indication: PARKINSON'S DISEASE
     Route: 048
  2. GLUCOVANCE [Concomitant]
  3. SINEMET [Concomitant]
  4. COMTAN [Concomitant]
  5. MIRAPEX [Concomitant]
  6. PHILLIPS LAXCAPS [Concomitant]
  7. NEXIUM [Concomitant]
  8. DIOVAN HCT [Concomitant]
  9. AMANTADINE [Concomitant]
  10. DULCOLAX [Concomitant]
  11. NASACORT [Concomitant]
  12. ALBUTEROL [Concomitant]
  13. ADVAIR DISKUS 100/50 [Concomitant]
  14. HYDROCODONE [Concomitant]

REACTIONS (1)
  - DRUG INEFFECTIVE [None]
